FAERS Safety Report 4645026-8 (Version None)
Quarter: 2005Q2

REPORT INFORMATION
  Report Type: 
  Country: None (occurrence: None)
  Receive Date: 20050422
  Receipt Date: 20050225
  Transmission Date: 20051028
  Serious: No
  Sender: FDA-Public Use
  Company Number: 2005026550

PATIENT
  Sex: Female

DRUGS (1)
  1. GLUCOTROL XL [Suspect]
     Indication: ILL-DEFINED DISORDER

REACTIONS (2)
  - BLOOD GLUCOSE INCREASED [None]
  - COLOSTOMY [None]
